FAERS Safety Report 17465267 (Version 1)
Quarter: 2020Q1

REPORT INFORMATION
  Report Type: Spontaneous
  Country: IT (occurrence: IT)
  Receive Date: 20200227
  Receipt Date: 20200227
  Transmission Date: 20200409
  Serious: Yes (Other)
  Sender: FDA-Public Use
  Company Number: IT-ROCHE-2556901

PATIENT
  Age: 43 Year
  Sex: Female

DRUGS (13)
  1. HYDROXYCHLOROQUINE SULFATE. [Suspect]
     Active Substance: HYDROXYCHLOROQUINE SULFATE
     Indication: SYSTEMIC LUPUS ERYTHEMATOSUS
     Dosage: 400 MG, QD
     Route: 065
  2. TACROLIMUS. [Suspect]
     Active Substance: TACROLIMUS
     Indication: SYSTEMIC LUPUS ERYTHEMATOSUS
     Dosage: UNK UNK, QD
     Route: 065
  3. PREDNISONE. [Suspect]
     Active Substance: PREDNISONE
     Dosage: 15 MG, QD
     Route: 065
  4. PREDNISONE. [Suspect]
     Active Substance: PREDNISONE
     Dosage: UNK UNK (10 MG QD, DOSE TAPERING)
     Route: 065
     Dates: start: 201708, end: 201709
  5. PREDNISONE. [Suspect]
     Active Substance: PREDNISONE
     Indication: SYSTEMIC LUPUS ERYTHEMATOSUS
     Dosage: 25 MG, QD
     Route: 065
     Dates: start: 201607, end: 201705
  6. PREDNISONE. [Suspect]
     Active Substance: PREDNISONE
     Dosage: UNK UNK (15 MG QD, DOSE TAPERING)
     Route: 065
     Dates: start: 201706, end: 201707
  7. PREDNISONE. [Suspect]
     Active Substance: PREDNISONE
     Dosage: UNK (25 MG QD, DOSE TAPERING)
     Route: 065
     Dates: start: 201705, end: 201706
  8. METHYLPREDNISOLONE. [Concomitant]
     Active Substance: METHYLPREDNISOLONE
     Indication: SYSTEMIC LUPUS ERYTHEMATOSUS
     Dosage: UNK (PULSES)
     Route: 065
  9. RITUXIMAB. [Concomitant]
     Active Substance: RITUXIMAB
     Indication: SYSTEMIC LUPUS ERYTHEMATOSUS
     Dosage: UNK
     Route: 065
  10. MYCOPHENOLATE MOFETIL. [Suspect]
     Active Substance: MYCOPHENOLATE MOFETIL
     Indication: SYSTEMIC LUPUS ERYTHEMATOSUS
     Dosage: UNK UNK, QD
     Route: 065
  11. PREDNISONE. [Suspect]
     Active Substance: PREDNISONE
     Dosage: UNK UNK (7.5 MG QD, DOSE TAPERING)
     Route: 065
     Dates: start: 201709
  12. PREDNISONE. [Suspect]
     Active Substance: PREDNISONE
     Dosage: UNK (50 MG QD, TAPERING DOSE)
     Route: 065
     Dates: start: 201606, end: 201607
  13. PREDNISONE. [Suspect]
     Active Substance: PREDNISONE
     Dosage: UNK UNK (12.5 MG QD, DOSE TAPERING)
     Route: 065
     Dates: start: 201707, end: 201708

REACTIONS (4)
  - Pyrexia [Recovered/Resolved]
  - Drug ineffective [Unknown]
  - Arthralgia [Recovered/Resolved]
  - Systemic lupus erythematosus [Recovered/Resolved]

NARRATIVE: CASE EVENT DATE: 201606
